FAERS Safety Report 6231940-9 (Version None)
Quarter: 2009Q2

REPORT INFORMATION
  Report Type: 
  Country: None (occurrence: None)
  Receive Date: 20090616
  Receipt Date: 20090403
  Transmission Date: 20091009
  Serious: Yes (Hospitalization)
  Sender: FDA-Public Use
  Company Number: TR-ELI_LILLY_AND_COMPANY-TR200906003262

PATIENT
  Age: 60 Year
  Sex: Female

DRUGS (4)
  1. HUMALOG MIX 75/25 [Suspect]
     Indication: DIABETES MELLITUS
     Dosage: 14 IU, EACH MORNING
     Route: 058
     Dates: start: 20090409
  2. HUMALOG MIX 75/25 [Suspect]
     Dosage: 24 IU, EACH EVENING
     Route: 058
     Dates: start: 20090409
  3. CADUET [Concomitant]
     Indication: BLOOD PRESSURE
     Dosage: 1 D/F, UNK
     Route: 048
  4. NORODOL [Concomitant]
     Indication: NERVOUS SYSTEM DISORDER
     Dosage: 10 GTT, 2/D
     Route: 048

REACTIONS (2)
  - ABDOMINAL PAIN UPPER [None]
  - GALLBLADDER OPERATION [None]
